FAERS Safety Report 23779741 (Version 2)
Quarter: 2024Q3

REPORT INFORMATION
  Report Type: Spontaneous
  Country: US (occurrence: US)
  Receive Date: 20240424
  Receipt Date: 20240702
  Transmission Date: 20241016
  Serious: Yes (Other)
  Sender: SANOFI AVENTIS
  Company Number: US-SANOFI-02019086

PATIENT
  Age: 71 Year
  Sex: Male

DRUGS (9)
  1. TOUJEO [Suspect]
     Active Substance: INSULIN GLARGINE
     Indication: Type 2 diabetes mellitus
     Dosage: 30 U Q AM AND 34 Q P
  2. TOUJEO [Suspect]
     Active Substance: INSULIN GLARGINE
     Dosage: 20 IU, BID
  3. TOUJEO [Suspect]
     Active Substance: INSULIN GLARGINE
     Dosage: 40 U Q AM AND 44 U Q PM BID
     Route: 065
  4. HUMULIN R [Concomitant]
     Active Substance: INSULIN HUMAN
  5. NOVOLIN R [Concomitant]
     Active Substance: INSULIN HUMAN
     Dosage: 7 IU
  6. NOVOLIN R [Concomitant]
     Active Substance: INSULIN HUMAN
     Dosage: 10 IU
  7. NOVOLIN R [Concomitant]
     Active Substance: INSULIN HUMAN
     Dosage: 15 IU
  8. NOVOLIN R [Concomitant]
     Active Substance: INSULIN HUMAN
     Dosage: 25 U 2 TO 3 TIMES A DAY
  9. TRULICITY [Concomitant]
     Active Substance: DULAGLUTIDE

REACTIONS (7)
  - B-cell lymphoma [Not Recovered/Not Resolved]
  - Diabetes mellitus inadequate control [Not Recovered/Not Resolved]
  - Cardiac disorder [Not Recovered/Not Resolved]
  - Lung neoplasm [Not Recovered/Not Resolved]
  - Weight increased [Not Recovered/Not Resolved]
  - Off label use [Unknown]
  - Therapeutic product effect decreased [Unknown]
